FAERS Safety Report 15569501 (Version 1)
Quarter: 2018Q4

REPORT INFORMATION
  Report Type: Spontaneous
  Country: RU (occurrence: RU)
  Receive Date: 20181031
  Receipt Date: 20181031
  Transmission Date: 20190205
  Serious: Yes (Other)
  Sender: FDA-Public Use
  Company Number: RU-ADIENNEP-2018AD000533

PATIENT
  Age: 38 Year
  Sex: Male

DRUGS (9)
  1. RITUXIMAB. [Concomitant]
     Active Substance: RITUXIMAB
     Indication: CENTRAL NERVOUS SYSTEM LYMPHOMA
     Route: 042
  2. METHOTREXATE. [Concomitant]
     Active Substance: METHOTREXATE
     Indication: CENTRAL NERVOUS SYSTEM LYMPHOMA
  3. IFOSFAMIDE. [Concomitant]
     Active Substance: IFOSFAMIDE
     Indication: CENTRAL NERVOUS SYSTEM LYMPHOMA
  4. TEPADINA [Suspect]
     Active Substance: THIOTEPA
     Indication: STEM CELL TRANSPLANT
     Route: 042
  5. DEXAMETHASONE. [Concomitant]
     Active Substance: DEXAMETHASONE
     Indication: PROPHYLAXIS AGAINST TRANSPLANT REJECTION
  6. MYLERAN [Suspect]
     Active Substance: BUSULFAN
     Indication: STEM CELL TRANSPLANT
     Dosage: .8 MG/KG DAILY
     Route: 042
  7. CYTARABINE. [Concomitant]
     Active Substance: CYTARABINE
     Indication: CENTRAL NERVOUS SYSTEM LYMPHOMA
     Route: 042
  8. CYTARABINE. [Concomitant]
     Active Substance: CYTARABINE
     Indication: CENTRAL NERVOUS SYSTEM LYMPHOMA
     Route: 037
  9. CYCLOPHOSPHAMIDE. [Suspect]
     Active Substance: CYCLOPHOSPHAMIDE
     Indication: STEM CELL TRANSPLANT
     Route: 042

REACTIONS (4)
  - Sepsis [Unknown]
  - Mucosal inflammation [Unknown]
  - Bacterial infection [Unknown]
  - Pseudomonal bacteraemia [Unknown]
